FAERS Safety Report 9741348 (Version 2)
Quarter: 2014Q2

REPORT INFORMATION
  Report Type: Report from Study
  Country: JP (occurrence: JP)
  Receive Date: 20131209
  Receipt Date: 20140403
  Transmission Date: 20141212
  Serious: Yes (Hospitalization)
  Sender: FDA-Public Use
  Company Number: JP-ABBVIE-13P-087-1177214-00

PATIENT
  Age: 74 Year
  Sex: Female
  Weight: 42 kg

DRUGS (6)
  1. KLARICID TABLETS 200MG [Suspect]
     Indication: ATYPICAL MYCOBACTERIAL INFECTION
     Route: 048
     Dates: start: 20090518, end: 20110913
  2. KLARICID TABLETS 200MG [Suspect]
     Dates: start: 20110914, end: 20120906
  3. ETHAMBUTOL HYDROCHLORIDE [Concomitant]
     Indication: ATYPICAL MYCOBACTERIAL INFECTION
     Dates: start: 20090518, end: 20110913
  4. RIFAMPICIN [Concomitant]
     Indication: ATYPICAL MYCOBACTERIAL INFECTION
     Dates: start: 20090518, end: 20110707
  5. ASPIRIN [Concomitant]
     Indication: PRODUCT USED FOR UNKNOWN INDICATION
     Route: 048
     Dates: end: 20110707
  6. ALL OTHER THERAPEUTIC PRODUCTS [Concomitant]
     Indication: PROPHYLAXIS
     Route: 048
     Dates: start: 20090518, end: 20110707

REACTIONS (1)
  - Bile duct cancer [Unknown]
